FAERS Safety Report 5645300-2 (Version None)
Quarter: 2008Q1

REPORT INFORMATION
  Report Type: 
  Country: None (occurrence: None)
  Receive Date: 20080229
  Receipt Date: 20080214
  Transmission Date: 20080703
  Serious: Yes (Hospitalization, Congenital Anomaly)
  Sender: FDA-Public Use
  Company Number: A0680342A

PATIENT
  Sex: Male
  Weight: 3 kg

DRUGS (8)
  1. PAXIL CR [Suspect]
     Indication: DEPRESSION
     Dosage: 25MG PER DAY
     Dates: start: 20040401, end: 20060701
  2. VITAMIN TAB [Concomitant]
     Dates: start: 20040101, end: 20050101
  3. MOTRIN [Concomitant]
     Dates: start: 19950101
  4. ALEVE [Concomitant]
     Dates: start: 19950101
  5. ZANTAC 150 [Concomitant]
     Dosage: 150MG TWICE PER DAY
     Dates: start: 20050517
  6. PREVACID [Concomitant]
     Dates: start: 20040901, end: 20041001
  7. AMOXICILLIN [Concomitant]
     Dates: start: 20040101
  8. NAPROXEN [Concomitant]
     Dates: start: 20030101, end: 20060101

REACTIONS (20)
  - ATRIAL SEPTAL DEFECT [None]
  - BREECH PRESENTATION [None]
  - CARDIAC FAILURE CONGESTIVE [None]
  - CARDIAC MURMUR [None]
  - CARDIOMEGALY [None]
  - CYANOSIS [None]
  - DRUG EXPOSURE DURING PREGNANCY [None]
  - FAILURE TO THRIVE [None]
  - HEART DISEASE CONGENITAL [None]
  - HYPERHIDROSIS [None]
  - LUNG HYPERINFLATION [None]
  - PILONIDAL CYST CONGENITAL [None]
  - PLEURAL EFFUSION [None]
  - PULMONARY OEDEMA [None]
  - PULMONARY VALVE STENOSIS [None]
  - RESPIRATORY DISORDER [None]
  - RIGHT VENTRICLE OUTFLOW TRACT OBSTRUCTION [None]
  - VENTRICULAR SEPTAL DEFECT [None]
  - VOMITING [None]
  - WEIGHT GAIN POOR [None]
